FAERS Safety Report 8588894-X (Version None)
Quarter: 2012Q3

REPORT INFORMATION
  Report Type: 
  Country: None (occurrence: None)
  Receive Date: 20120813
  Receipt Date: 20120803
  Transmission Date: 20120928
  Serious: Yes (Other)
  Sender: FDA-Public Use
  Company Number: BR-PFIZER INC-2012193451

PATIENT
  Age: 69 Year
  Sex: Female
  Weight: 66 kg

DRUGS (5)
  1. FELDENE [Suspect]
     Indication: PAIN
     Dosage: 20 MG, UNK
     Route: 060
  2. LOSARTAN [Concomitant]
     Dosage: UNK
  3. FELDENE [Suspect]
     Indication: MORTON'S NEUROMA
  4. HYDROCHLOROTHIAZIDE [Concomitant]
     Dosage: 25 MG, UNK
  5. METFORMIN [Concomitant]
     Dosage: 500 (UNSPECIFIED UNITS)

REACTIONS (2)
  - DRUG INEFFECTIVE [None]
  - MOVEMENT DISORDER [None]
